FAERS Safety Report 7841043-5 (Version None)
Quarter: 2011Q4

REPORT INFORMATION
  Report Type: 
  Country: None (occurrence: None)
  Receive Date: 20111020
  Receipt Date: 20111006
  Transmission Date: 20120403
  Serious: Yes (Other)
  Sender: FDA-Public Use
  Company Number: ABR_00260_2011

PATIENT
  Sex: Female

DRUGS (1)
  1. ERYTHROMYCIN [Suspect]
     Indication: CHRONIC OBSTRUCTIVE PULMONARY DISEASE
     Dosage: (250 MG QID)
     Dates: start: 20110601, end: 20110101

REACTIONS (9)
  - RASH [None]
  - HYPERHIDROSIS [None]
  - BEDRIDDEN [None]
  - NAUSEA [None]
  - RENAL PAIN [None]
  - PAIN IN JAW [None]
  - HEADACHE [None]
  - WEIGHT DECREASED [None]
  - CHILLS [None]
